FAERS Safety Report 18545980 (Version 9)
Quarter: 2022Q2

REPORT INFORMATION
  Report Type: Spontaneous
  Country: JP (occurrence: JP)
  Receive Date: 20201125
  Receipt Date: 20220418
  Transmission Date: 20220721
  Serious: Yes (Hospitalization, Other)
  Sender: FDA-Public Use
  Company Number: NVSC2020JP313334

PATIENT
  Age: 86 Year
  Sex: Male

DRUGS (2)
  1. TAFINLAR [Suspect]
     Active Substance: DABRAFENIB MESYLATE
     Indication: Lung adenocarcinoma stage IV
     Dosage: 150 MG, BID
     Route: 048
  2. MEKINIST [Suspect]
     Active Substance: TRAMETINIB DIMETHYL SULFOXIDE
     Indication: Lung adenocarcinoma stage IV
     Dosage: 2 MG, QD
     Route: 048

REACTIONS (9)
  - Oedema peripheral [Recovered/Resolved]
  - Hypoalbuminaemia [Recovering/Resolving]
  - Interstitial lung disease [Recovering/Resolving]
  - General physical health deterioration [Recovering/Resolving]
  - Pneumonia bacterial [Unknown]
  - Pyrexia [Unknown]
  - Hepatic function abnormal [Unknown]
  - Blood alkaline phosphatase increased [Unknown]
  - Anaemia [Unknown]

NARRATIVE: CASE EVENT DATE: 20200513
